FAERS Safety Report 6915733-2 (Version None)
Quarter: 2010Q3

REPORT INFORMATION
  Report Type: 
  Country: None (occurrence: None)
  Receive Date: 20100810
  Receipt Date: 20100121
  Transmission Date: 20110219
  Serious: No
  Sender: FDA-Public Use
  Company Number: A0840726A

PATIENT
  Sex: Female

DRUGS (2)
  1. PAXIL [Suspect]
     Indication: ANXIETY DISORDER
     Dosage: 37.5MG PER DAY
     Route: 048
  2. ORAL CONTRACEPTIVE [Concomitant]

REACTIONS (1)
  - DRUG INEFFECTIVE [None]
